FAERS Safety Report 18203230 (Version 1)
Quarter: 2020Q3

REPORT INFORMATION
  Report Type: Spontaneous
  Country: TW (occurrence: TW)
  Receive Date: 20200827
  Receipt Date: 20200827
  Transmission Date: 20201103
  Serious: Yes (Death, Hospitalization)
  Sender: FDA-Public Use
  Company Number: TW-BAYER-2020-176607

PATIENT
  Age: 43 Year
  Sex: Female

DRUGS (3)
  1. NIVOLUMAB [Suspect]
     Active Substance: NIVOLUMAB
     Route: 017
  2. RASBURICASE [Concomitant]
     Active Substance: RASBURICASE
     Dosage: 1.5 MG, BID
  3. SORAFENIB (RAF KINASE INHIBITOR) [Suspect]
     Active Substance: SORAFENIB
     Indication: HEPATOCELLULAR CARCINOMA
     Dosage: DAILY DOSE 200 MG

REACTIONS (4)
  - Tumour lysis syndrome [Fatal]
  - Hepatic failure [Fatal]
  - Acute kidney injury [Fatal]
  - Hepatic encephalopathy [Fatal]
